FAERS Safety Report 24386887 (Version 1)
Quarter: 2024Q4

REPORT INFORMATION
  Report Type: Spontaneous
  Country: US (occurrence: US)
  Receive Date: 20241002
  Receipt Date: 20241002
  Transmission Date: 20250115
  Serious: No
  Sender: ABBVIE
  Company Number: US-ABBVIE-5941459

PATIENT
  Age: 53 Year
  Sex: Female
  Weight: 70 kg

DRUGS (3)
  1. ESTRACE [Suspect]
     Active Substance: ESTRADIOL
     Indication: Urethral atrophy
     Dosage: FORM STRENGTH: 0.1 MILLIGRAM
     Route: 067
     Dates: start: 20240903, end: 20240916
  2. ESTRACE [Suspect]
     Active Substance: ESTRADIOL
     Indication: Urethral atrophy
     Dosage: FORM STRENGTH: 0.1 MILLIGRAM
     Route: 067
     Dates: start: 20240916
  3. MESALAMINE [Concomitant]
     Active Substance: MESALAMINE
     Indication: Inflammatory bowel disease

REACTIONS (4)
  - Pruritus [Not Recovered/Not Resolved]
  - Erythema [Not Recovered/Not Resolved]
  - Discharge [Recovering/Resolving]
  - Burning sensation [Not Recovered/Not Resolved]

NARRATIVE: CASE EVENT DATE: 20240921
